FAERS Safety Report 8108131-X (Version None)
Quarter: 2012Q1

REPORT INFORMATION
  Report Type: 
  Country: None (occurrence: None)
  Receive Date: 20120202
  Receipt Date: 20120126
  Transmission Date: 20120608
  Serious: Yes (Other)
  Sender: FDA-Public Use
  Company Number: CA-PFIZER INC-2011135749

PATIENT
  Age: 67 Year
  Sex: Female

DRUGS (4)
  1. FOSAVANCE [Concomitant]
     Indication: OSTEOPOROSIS
  2. CALCIUM [Concomitant]
     Dosage: UNK
     Dates: start: 20110522
  3. FOSAVANCE [Concomitant]
     Indication: BONE LOSS
     Dosage: 70 MG, WEEKLY
     Dates: start: 20110522
  4. XALATAN [Suspect]
     Indication: GLAUCOMA
     Dosage: 1 GTT IN BOTH EYES, 1X/DAY
     Route: 047
     Dates: start: 20110501

REACTIONS (2)
  - INTRAOCULAR PRESSURE INCREASED [None]
  - NARROW ANTERIOR CHAMBER ANGLE [None]
